FAERS Safety Report 14709736 (Version 2)
Quarter: 2018Q2

REPORT INFORMATION
  Report Type: Report from Study
  Country: None (occurrence: CA)
  Receive Date: 20180403
  Receipt Date: 20180405
  Transmission Date: 20180711
  Serious: Yes (Other)
  Sender: FDA-Public Use
  Company Number: CA-ABBVIE-17P-028-2015043-00

PATIENT
  Sex: Female

DRUGS (1)
  1. HUMIRA [Suspect]
     Active Substance: ADALIMUMAB
     Indication: RHEUMATOID ARTHRITIS
     Route: 058
     Dates: start: 20161027

REACTIONS (7)
  - Injection site pain [Recovered/Resolved]
  - Vomiting [Unknown]
  - Depression [Unknown]
  - Rectal haemorrhage [Recovered/Resolved]
  - Hernia perforation [Not Recovered/Not Resolved]
  - Arthralgia [Unknown]
  - Hernia [Not Recovered/Not Resolved]

NARRATIVE: CASE EVENT DATE: 2017
